FAERS Safety Report 26025650 (Version 1)
Quarter: 2025Q4

REPORT INFORMATION
  Report Type: Spontaneous
  Country: EU (occurrence: EU)
  Receive Date: 20251111
  Receipt Date: 20251111
  Transmission Date: 20260117
  Serious: Yes (Hospitalization, Other)
  Sender: RANBAXY
  Company Number: EU-SUN PHARMACEUTICAL INDUSTRIES LTD-2025R1-535360

PATIENT
  Age: 71 Year
  Sex: Male

DRUGS (1)
  1. TRIAMCINOLONE [Suspect]
     Active Substance: TRIAMCINOLONE
     Indication: Arthralgia
     Dosage: UNK UNK, 2 DOSE
     Route: 014

REACTIONS (3)
  - Secondary adrenocortical insufficiency [Unknown]
  - Hypotension [Unknown]
  - Transient ischaemic attack [Unknown]
